FAERS Safety Report 23546529 (Version 2)
Quarter: 2025Q1

REPORT INFORMATION
  Report Type: Report from Study
  Country: CA (occurrence: CA)
  Receive Date: 20240221
  Receipt Date: 20250106
  Transmission Date: 20250408
  Serious: Yes (Other)
  Sender: GLAXOSMITHKLINE
  Company Number: None

PATIENT

DRUGS (2)
  1. MEPOLIZUMAB [Suspect]
     Active Substance: MEPOLIZUMAB
     Indication: Asthma
     Dosage: 100 MG, Q4W
     Route: 058
     Dates: start: 20190228
  2. MEPOLIZUMAB [Suspect]
     Active Substance: MEPOLIZUMAB
     Indication: Asthma
     Dosage: 100 MG, Q4W
     Route: 058

REACTIONS (11)
  - Leukaemia [Unknown]
  - Pneumonia [Unknown]
  - Asthma [Unknown]
  - Fatigue [Unknown]
  - Chills [Unknown]
  - Productive cough [Unknown]
  - Body temperature abnormal [Unknown]
  - Blood pressure abnormal [Unknown]
  - Heart rate abnormal [Unknown]
  - Oxygen saturation abnormal [Unknown]
  - Vital functions abnormal [Unknown]

NARRATIVE: CASE EVENT DATE: 20241201
